FAERS Safety Report 22949840 (Version 3)
Quarter: 2023Q4

REPORT INFORMATION
  Report Type: Report from Study
  Country: US (occurrence: US)
  Receive Date: 20230915
  Receipt Date: 20231117
  Transmission Date: 20240110
  Serious: Yes (Other)
  Sender: FDA-Public Use
  Company Number: US-002147023-NVSC2023US200094

PATIENT
  Sex: Male

DRUGS (1)
  1. ENTRESTO [Suspect]
     Active Substance: SACUBITRIL\VALSARTAN
     Indication: Product used for unknown indication
     Dosage: UNK, BID (24/26 MG)
     Route: 048
     Dates: start: 2023

REACTIONS (8)
  - Cardiac failure [Unknown]
  - Device inappropriate shock delivery [Unknown]
  - Weight increased [Unknown]
  - Dyspnoea [Unknown]
  - Memory impairment [Unknown]
  - Brain fog [Unknown]
  - Ankle fracture [Unknown]
  - Muscle spasms [Unknown]
